FAERS Safety Report 4362836-5 (Version None)
Quarter: 2004Q2

REPORT INFORMATION
  Report Type: 
  Country: None (occurrence: None)
  Receive Date: 20040518
  Receipt Date: 20040505
  Transmission Date: 20050107
  Serious: Yes (Hospitalization, Other)
  Sender: FDA-Public Use
  Company Number: HQWYE717905MAY04

PATIENT
  Age: 82 Year
  Sex: Female

DRUGS (6)
  1. CORDARONE [Suspect]
     Dosage: 200 MG AS NEEDED, ORAL
     Route: 048
     Dates: end: 20040325
  2. LASIX [Suspect]
     Dosage: 20 MG 1 X PER 1 DAY, ORAL
     Route: 048
     Dates: start: 20040130, end: 20040324
  3. MEMANTINE HCL [Suspect]
     Dosage: 20 MG 1 X PER 1 DAY, ORAL
     Route: 048
     Dates: start: 20031015, end: 20040325
  4. MOTILIUM [Suspect]
     Dosage: 12 MG 3 X PER 1 DAY, ORAL
     Route: 048
     Dates: end: 20040325
  5. NEXIUM [Suspect]
     Dosage: 20 MG 1X PER 1 DAY
     Route: 048
     Dates: start: 20031121, end: 20040325
  6. TIAPRIDAL (TIAPRIDE) [Suspect]
     Dosage: ORAL
     Route: 048
     Dates: end: 20040325

REACTIONS (4)
  - FEBRILE NEUTROPENIA [None]
  - GENERAL PHYSICAL HEALTH DETERIORATION [None]
  - LUNG INFECTION [None]
  - SEPTIC SHOCK [None]
